FAERS Safety Report 17547517 (Version 3)
Quarter: 2021Q1

REPORT INFORMATION
  Report Type: Report from Study
  Country: None (occurrence: US)
  Receive Date: 20200317
  Receipt Date: 20210120
  Transmission Date: 20210419
  Serious: Yes (Hospitalization, Other)
  Sender: FDA-Public Use
  Company Number: US-ABBVIE-19K-163-3135251-00

PATIENT
  Age: 69 Year
  Sex: Female

DRUGS (8)
  1. RITUXAN [Concomitant]
     Active Substance: RITUXIMAB
     Indication: PRODUCT USED FOR UNKNOWN INDICATION
  2. IMBRUVICA [Suspect]
     Active Substance: IBRUTINIB
     Indication: WALDENSTROM^S MACROGLOBULINAEMIA
     Dosage: 420 MG, QD
     Route: 048
     Dates: start: 20190201
  3. IMBRUVICA [Suspect]
     Active Substance: IBRUTINIB
     Dosage: 420 MG, QD
     Route: 048
     Dates: start: 20190331
  4. IMBRUVICA [Suspect]
     Active Substance: IBRUTINIB
     Route: 048
     Dates: start: 20181207, end: 202009
  5. IMBRUVICA [Suspect]
     Active Substance: IBRUTINIB
     Route: 048
     Dates: start: 20181207
  6. IMBRUVICA [Suspect]
     Active Substance: IBRUTINIB
     Dosage: 420 MG, QD
     Route: 048
     Dates: start: 20190302, end: 201903
  7. IMBRUVICA [Suspect]
     Active Substance: IBRUTINIB
     Route: 048
     Dates: start: 20181207
  8. IMBRUVICA [Suspect]
     Active Substance: IBRUTINIB
     Route: 048

REACTIONS (16)
  - Pruritus [Unknown]
  - Adverse event [Unknown]
  - Rash [Unknown]
  - Benign hepatic neoplasm [Unknown]
  - Onychoclasis [Unknown]
  - Blood immunoglobulin G decreased [Unknown]
  - Hypersomnia [Unknown]
  - Nasal ulcer [Unknown]
  - Urticaria [Unknown]
  - Asthenia [Unknown]
  - Diarrhoea [Unknown]
  - Alopecia [Unknown]
  - Hepatic adenoma [Unknown]
  - Rash papular [Unknown]
  - Hepatectomy [Unknown]
  - Nausea [Unknown]

NARRATIVE: CASE EVENT DATE: 202009
